FAERS Safety Report 14045954 (Version 1)
Quarter: 2017Q4

REPORT INFORMATION
  Report Type: Spontaneous
  Country: US (occurrence: US)
  Receive Date: 20171005
  Receipt Date: 20171005
  Transmission Date: 20180321
  Serious: No
  Sender: FDA-Public Use
  Company Number: US-PFIZER INC-2017428732

PATIENT
  Age: 74 Year
  Sex: Female

DRUGS (5)
  1. EXFORGE [Concomitant]
     Active Substance: AMLODIPINE BESYLATE\VALSARTAN
     Indication: HYPERTENSION
     Dosage: 1 DF (1 TABLET BY MOUTH)
     Route: 048
  2. IBRANCE [Concomitant]
     Active Substance: PALBOCICLIB
     Dosage: 75 MG, UNK
  3. IBRANCE [Concomitant]
     Active Substance: PALBOCICLIB
     Indication: METASTASIS
     Dosage: 100 MG, UNK
     Dates: start: 201609, end: 201708
  4. ONDANSETRON [Suspect]
     Active Substance: ONDANSETRON
     Indication: NAUSEA
     Dosage: UNK
  5. PRAVASTATIN. [Concomitant]
     Active Substance: PRAVASTATIN
     Indication: BLOOD CHOLESTEROL INCREASED
     Dosage: 80 MG, 1X/DAY
     Route: 048

REACTIONS (1)
  - Drug effect incomplete [Unknown]
